FAERS Safety Report 4440612-2 (Version None)
Quarter: 2004Q3

REPORT INFORMATION
  Report Type: 
  Country: None (occurrence: None)
  Receive Date: 20040901
  Receipt Date: 20040901
  Transmission Date: 20050211
  Serious: Yes (Hospitalization)
  Sender: FDA-Public Use
  Company Number: None

PATIENT
  Sex: Male
  Weight: 108.8633 kg

DRUGS (1)
  1. AMOXIL [Suspect]
     Indication: TOOTH EXTRACTION
     Dosage: PO [PRIOR TO ADMISSION]
     Route: 048
     Dates: start: 20040322

REACTIONS (4)
  - PAIN IN EXTREMITY [None]
  - PRURITUS [None]
  - RASH GENERALISED [None]
  - SWELLING [None]
